FAERS Safety Report 24358412 (Version 2)
Quarter: 2025Q1

REPORT INFORMATION
  Report Type: Spontaneous
  Country: IE (occurrence: IE)
  Receive Date: 20240924
  Receipt Date: 20250107
  Transmission Date: 20250409
  Serious: Yes (Other)
  Sender: PFIZER
  Company Number: IE-PFIZER INC-PV202400106560

PATIENT
  Age: 11 Year
  Sex: Male
  Weight: 38.4 kg

DRUGS (3)
  1. NGENLA [Suspect]
     Active Substance: SOMATROGON-GHLA
     Indication: Growth hormone deficiency
     Dosage: 15 MG, WEEKLY
     Dates: start: 20240530, end: 20240531
  2. NGENLA [Suspect]
     Active Substance: SOMATROGON-GHLA
     Dosage: 15 MG, WEEKLY
     Dates: start: 20240704, end: 20240717
  3. NGENLA [Suspect]
     Active Substance: SOMATROGON-GHLA
     Dosage: 25 MG, WEEKLY
     Dates: start: 20240718, end: 20240725

REACTIONS (3)
  - Haemoglobinuria [Recovered/Resolved]
  - Haematuria [Recovered/Resolved]
  - Off label use [Unknown]

NARRATIVE: CASE EVENT DATE: 20240531
